FAERS Safety Report 14339864 (Version 1)
Quarter: 2017Q4

REPORT INFORMATION
  Report Type: Spontaneous
  Country: GB (occurrence: GB)
  Receive Date: 20171230
  Receipt Date: 20171230
  Transmission Date: 20180321
  Serious: Yes (Other)
  Sender: FDA-Public Use
  Company Number: GB-MYLANLABS-2017M1083278

PATIENT
  Age: 87 Year
  Sex: Female
  Weight: 30 kg

DRUGS (20)
  1. PARACETAMOL [Concomitant]
     Active Substance: ACETAMINOPHEN
     Dosage: 4 TIMES A DAY
     Dates: start: 20150416
  2. ENALAPRIL [Suspect]
     Active Substance: ENALAPRIL
     Indication: PRODUCT USED FOR UNKNOWN INDICATION
     Dosage: UNK
  3. CASSIA ACUTIFOLIA [Concomitant]
     Dosage: MORNING
     Dates: start: 20170621, end: 20171129
  4. CANDESARTAN. [Concomitant]
     Active Substance: CANDESARTAN
     Dosage: 1 DF, UNK
     Dates: start: 20060704, end: 20171129
  5. IBUPROFEN. [Concomitant]
     Active Substance: IBUPROFEN
     Dosage: APPLY UP TO THREE TIMES A DAY TO LOWER BACK
     Dates: start: 20170929, end: 20171027
  6. BENDROFLUMETHIAZIDE [Concomitant]
     Active Substance: BENDROFLUMETHIAZIDE
     Dosage: MORNING
     Dates: start: 20050131, end: 20171129
  7. OPTIVE [Concomitant]
     Active Substance: CARBOXYMETHYLCELLULOSE SODIUM\GLYCERIN
     Dosage: UNK
     Dates: start: 20140331, end: 20171129
  8. BUPRENORPHINE. [Concomitant]
     Active Substance: BUPRENORPHINE
     Dosage: ON A FRIDAY
     Dates: start: 20171107
  9. DIGOXIN. [Concomitant]
     Active Substance: DIGOXIN
     Dosage: 1 DF, UNK
     Dates: start: 20160219
  10. PREGABALIN. [Concomitant]
     Active Substance: PREGABALIN
     Dosage: 2 DF, UNK
     Dates: start: 20171110
  11. MORPHINE SULFATE. [Concomitant]
     Active Substance: MORPHINE SULFATE
     Dosage: 2.5 ML, UNK
     Dates: start: 20170915, end: 20170920
  12. CALCIUM CARBONATE. [Concomitant]
     Active Substance: CALCIUM CARBONATE
     Dosage: TWO TO BE TAKEN EACH DAY, PREFERABLY ONE
     Dates: start: 20170621, end: 20171129
  13. BISOPROLOL [Concomitant]
     Active Substance: BISOPROLOL
     Dosage: 1 DF, UNK
     Dates: start: 20171110
  14. APIXABAN [Concomitant]
     Active Substance: APIXABAN
     Dosage: 2 DF, UNK
     Dates: start: 20171110
  15. IBANDRONIC ACID. [Concomitant]
     Active Substance: IBANDRONIC ACID
     Dosage: ON THE 12TH
     Dates: start: 20070808, end: 20171129
  16. AMLODIPINE [Concomitant]
     Active Substance: AMLODIPINE BESYLATE
     Dosage: MORNING
     Dates: start: 20050228, end: 20171129
  17. DOXAZOSIN [Concomitant]
     Active Substance: DOXAZOSIN\DOXAZOSIN MESYLATE
     Dosage: MORNING
     Dates: start: 20080130, end: 20171129
  18. FORTISIP [Concomitant]
     Active Substance: CARBOHYDRATES\FATTY ACIDS\MINERALS\PROTEIN\VITAMINS
     Dosage: USE AS DIRECTED
     Dates: start: 20170925, end: 20171002
  19. ZEROBASE                           /00103901/ [Concomitant]
     Dosage: USE AS DIRECTED
  20. FOLIC ACID. [Concomitant]
     Active Substance: FOLIC ACID
     Dosage: 1 DF, UNK
     Dates: start: 20171110

REACTIONS (1)
  - Malaise [Unknown]

NARRATIVE: CASE EVENT DATE: 20171130
